FAERS Safety Report 26191019 (Version 1)
Quarter: 2025Q4

REPORT INFORMATION
  Report Type: Spontaneous
  Country: US (occurrence: None)
  Receive Date: 20251222
  Receipt Date: 20251222
  Transmission Date: 20260117
  Serious: Yes (Death)
  Sender: FDA-CTU
  Company Number: None

PATIENT
  Age: 67 Year
  Sex: Male

DRUGS (1)
  1. QUTENZA [Suspect]
     Active Substance: CAPSAICIN
     Indication: Neuropathy peripheral
     Dosage: OTHER FREQUENCY : EVERY 90 DAYS ;
     Route: 061
     Dates: start: 20250925

REACTIONS (1)
  - Death [None]

NARRATIVE: CASE EVENT DATE: 20251005
